FAERS Safety Report 8808567 (Version 1)
Quarter: 2012Q4

REPORT INFORMATION
  Report Type: 
  Country: US (occurrence: None)
  Receive Date: 20120920
  Receipt Date: 20120920
  Transmission Date: 20130627
  Serious: Yes (Hospitalization)
  Sender: FDA-Public Use
  Company Number: None

PATIENT
  Sex: Male
  Weight: 66.8 kg

DRUGS (2)
  1. CISPLATIN [Suspect]
     Dates: start: 20120820
  2. PACLITAXEL (TAXOL) [Suspect]
     Dates: start: 20120820

REACTIONS (16)
  - Dehydration [None]
  - Neutropenia [None]
  - Dyspnoea exertional [None]
  - Urine flow decreased [None]
  - Dysphagia [None]
  - Toxicity to various agents [None]
  - Traumatic lung injury [None]
  - Fluid overload [None]
  - Infection [None]
  - Pneumonia [None]
  - Pleural effusion [None]
  - Renal failure acute [None]
  - Hypotension [None]
  - Septic shock [None]
  - Thrombocytopenia [None]
  - Pseudomonas infection [None]
